FAERS Safety Report 9189524 (Version 1)
Quarter: 2013Q1

REPORT INFORMATION
  Report Type: Spontaneous
  Country: US (occurrence: US)
  Receive Date: 20130326
  Receipt Date: 20130326
  Transmission Date: 20140127
  Serious: Yes (Other)
  Sender: FDA-Public Use
  Company Number: US-JNJFOC-20130311167

PATIENT
  Sex: Female

DRUGS (2)
  1. PANCREASE [Suspect]
     Indication: PRODUCT USED FOR UNKNOWN INDICATION
     Dosage: 21000 UNITS
     Route: 048
     Dates: start: 1982
  2. NEURONTIN [Suspect]
     Indication: NEUROPATHY PERIPHERAL
     Dosage: FOR 2 MONTHS IN 1999 FROM THE MIDDLE OF AUG-1999 TO OCT-1999
     Route: 065
     Dates: start: 199908, end: 199910

REACTIONS (1)
  - Food intolerance [Unknown]
